FAERS Safety Report 9476121 (Version 2)
Quarter: 2013Q3

REPORT INFORMATION
  Report Type: Spontaneous
  Country: JP (occurrence: JP)
  Receive Date: 20130826
  Receipt Date: 20130830
  Transmission Date: 20140515
  Serious: Yes (Hospitalization)
  Sender: FDA-Public Use
  Company Number: PHHY2013JP092147

PATIENT
  Age: 73 Year
  Sex: Male

DRUGS (2)
  1. EXELON PATCH [Suspect]
     Indication: DEMENTIA ALZHEIMER^S TYPE
     Dosage: 18 MG, DAILY
     Route: 062
     Dates: end: 2012
  2. REMINYL [Concomitant]
     Dosage: UNK UKN, UNK
     Route: 048
     Dates: start: 201211

REACTIONS (1)
  - Brain contusion [Unknown]
